FAERS Safety Report 5500770-5 (Version None)
Quarter: 2007Q4

REPORT INFORMATION
  Report Type: 
  Country: None (occurrence: None)
  Receive Date: 20071029
  Receipt Date: 20071016
  Transmission Date: 20080405
  Serious: Yes (Hospitalization)
  Sender: FDA-Public Use
  Company Number: GB-ROCHE-525547

PATIENT
  Age: 70 Year
  Sex: Female
  Weight: 77 kg

DRUGS (6)
  1. CAPECITABINE [Suspect]
     Indication: COLON CANCER
     Dosage: RECEIVED 1500 MG IN THE MORNING AND 2000 MG IN THE EVENING.
     Route: 048
     Dates: start: 20070620
  2. CAPECITABINE [Suspect]
     Route: 048
  3. BEVACIZUMAB [Suspect]
     Indication: COLON CANCER
     Dosage: DOSE: 575MG.
     Route: 042
     Dates: start: 20070620
  4. BENDROFLUAZIDE [Concomitant]
     Indication: HYPERTENSION
  5. BECOTIDE [Concomitant]
     Indication: ASTHMA
  6. VITAMIN B [Concomitant]

REACTIONS (1)
  - GASTROINTESTINAL STOMA COMPLICATION [None]
